FAERS Safety Report 10142770 (Version 1)
Quarter: 2014Q2

REPORT INFORMATION
  Report Type: Spontaneous
  Country: US (occurrence: None)
  Receive Date: 20140429
  Receipt Date: 20140429
  Transmission Date: 20141212
  Serious: No
  Sender: FDA-Public Use
  Company Number: None

PATIENT
  Age: 77 Year
  Sex: Female
  Weight: 120 kg

DRUGS (8)
  1. KETOCONAZOLE [Suspect]
     Indication: FUNGAL INFECTION
     Dosage: ON HEAD TO WASH HAIR
     Dates: start: 20140114, end: 20140329
  2. CLOBETASOL [Suspect]
     Indication: FUNGAL INFECTION
     Dosage: 0.05% ?3 TIMES A WEEK ?ON HEAD TO WASH HAIR
     Dates: start: 20140221, end: 20140329
  3. ATENOLOL [Concomitant]
  4. LISINOPRIL [Concomitant]
  5. KEPPRA [Concomitant]
  6. LAMICTAL [Concomitant]
  7. CHLORTHALIDONE [Concomitant]
  8. CLONIDINE [Concomitant]

REACTIONS (1)
  - Urinary incontinence [None]
